FAERS Safety Report 5069231-4 (Version None)
Quarter: 2006Q3

REPORT INFORMATION
  Report Type: 
  Country: None (occurrence: None)
  Receive Date: 20060803
  Receipt Date: 20060725
  Transmission Date: 20061208
  Serious: Yes (Death)
  Sender: FDA-Public Use
  Company Number: PHBS2006JP11194

PATIENT
  Age: 39 Year
  Sex: Male

DRUGS (4)
  1. TOLEDOMIN [Suspect]
     Dosage: UNK, UNK
     Route: 048
     Dates: start: 20060511
  2. MEILAX [Suspect]
     Dosage: UNK, UNK
     Route: 048
     Dates: start: 20060511
  3. TEGRETOL [Suspect]
     Indication: BIPOLAR I DISORDER
     Dosage: UNK, UNK
     Route: 048
     Dates: start: 20060511
  4. TEGRETOL [Suspect]
     Dosage: 14000 MG, ONCE/SINGLE
     Route: 048

REACTIONS (4)
  - COMPLETED SUICIDE [None]
  - DRUG TOXICITY [None]
  - INTENTIONAL OVERDOSE [None]
  - SUICIDE ATTEMPT [None]
